FAERS Safety Report 7549105-7 (Version None)
Quarter: 2011Q2

REPORT INFORMATION
  Report Type: 
  Country: None (occurrence: None)
  Receive Date: 20110615
  Receipt Date: 20110609
  Transmission Date: 20111010
  Serious: Yes (Death, Life-Threatening)
  Sender: FDA-Public Use
  Company Number: JP-BAYER-2011-045574

PATIENT
  Age: 84 Year
  Sex: Male

DRUGS (1)
  1. NEXAVAR [Suspect]
     Indication: RENAL CELL CARCINOMA
     Dosage: 200 MG, BID
     Route: 048
     Dates: start: 20110201, end: 20110501

REACTIONS (1)
  - INTERSTITIAL LUNG DISEASE [None]
